FAERS Safety Report 20656233 (Version 1)
Quarter: 2022Q1

REPORT INFORMATION
  Report Type: Spontaneous
  Country: CN (occurrence: CN)
  Receive Date: 20220331
  Receipt Date: 20220331
  Transmission Date: 20220423
  Serious: Yes (Other)
  Sender: FDA-Public Use
  Company Number: CN-ABBVIE-22K-035-4339441-00

PATIENT
  Age: 58 Year
  Sex: Male

DRUGS (3)
  1. VALPROATE SODIUM [Suspect]
     Active Substance: VALPROATE SODIUM
     Indication: Seizure prophylaxis
     Route: 048
     Dates: start: 20201218, end: 20201223
  2. FAMOTIDINE [Concomitant]
     Active Substance: FAMOTIDINE
     Indication: Stress
     Dates: start: 20201218, end: 20201224
  3. PIRACETAM [Concomitant]
     Active Substance: PIRACETAM
     Indication: Nutritional supplementation
     Dates: start: 20201218, end: 20201224

REACTIONS (1)
  - White blood cell count decreased [Recovering/Resolving]

NARRATIVE: CASE EVENT DATE: 20201223
